FAERS Safety Report 7745760-7 (Version None)
Quarter: 2011Q3

REPORT INFORMATION
  Report Type: 
  Country: None (occurrence: None)
  Receive Date: 20110913
  Receipt Date: 20110831
  Transmission Date: 20111222
  Serious: Yes (Death)
  Sender: FDA-Public Use
  Company Number: JP-US-EMD SERONO, INC.-7079365

PATIENT

DRUGS (1)
  1. SEROPHENE [Suspect]
     Indication: OVULATION INDUCTION
     Route: 064

REACTIONS (1)
  - CARDIAC DISORDER [None]
